FAERS Safety Report 9354226 (Version 2)
Quarter: 2013Q2

REPORT INFORMATION
  Report Type: Spontaneous
  Country: US (occurrence: US)
  Receive Date: 20130618
  Receipt Date: 20130624
  Transmission Date: 20140414
  Serious: Yes (Other)
  Sender: FDA-Public Use
  Company Number: US-TEVA-412662USA

PATIENT
  Age: 47 Year
  Sex: Female
  Weight: 68.55 kg

DRUGS (7)
  1. PROAIR HFA [Suspect]
     Indication: PROPHYLAXIS AGAINST BRONCHOSPASM
     Route: 055
  2. PROAIR HFA [Suspect]
     Indication: DYSPNOEA
  3. QVAR [Suspect]
     Indication: CHRONIC OBSTRUCTIVE PULMONARY DISEASE
  4. ADVAIR [Suspect]
     Indication: CHRONIC OBSTRUCTIVE PULMONARY DISEASE
     Route: 048
  5. CYMBALTA [Concomitant]
     Indication: MAJOR DEPRESSION
     Dosage: 60 MILLIGRAM DAILY;
     Route: 048
  6. VALIUM [Concomitant]
     Indication: PANIC ATTACK
     Dosage: .5 MILLIGRAM DAILY;
     Route: 048
  7. ANTIDEPRESSANT [Concomitant]

REACTIONS (5)
  - Hepatitis alcoholic [Not Recovered/Not Resolved]
  - Dyspnoea [Recovered/Resolved]
  - Heart rate increased [Recovered/Resolved]
  - Dyspnoea [Not Recovered/Not Resolved]
  - Inappropriate schedule of drug administration [Unknown]
